FAERS Safety Report 9800580 (Version 2)
Quarter: 2014Q1

REPORT INFORMATION
  Report Type: Spontaneous
  Country: US (occurrence: US)
  Receive Date: 20140107
  Receipt Date: 20140306
  Transmission Date: 20141002
  Serious: No
  Sender: FDA-Public Use
  Company Number: US-009507513-1312USA008575

PATIENT
  Age: 56 Year
  Sex: Female

DRUGS (11)
  1. COZAAR [Suspect]
     Dosage: UNK
     Route: 048
     Dates: start: 2002
  2. ESTRADIOL [Concomitant]
  3. ACIPHEX [Concomitant]
  4. LYRICA [Concomitant]
     Dosage: 25 MG, 3 TIMES DAILY
  5. ASPIRIN [Concomitant]
  6. CENTRUM SILVER [Concomitant]
  7. VITAMIN D (UNSPECIFIED) [Concomitant]
  8. VITAMIN E [Concomitant]
  9. ASCORBIC ACID [Concomitant]
  10. CALCIUM (UNSPECIFIED) [Concomitant]
  11. LYSINE [Concomitant]
     Route: 048

REACTIONS (1)
  - Pain [Unknown]
